FAERS Safety Report 20662985 (Version 2)
Quarter: 2022Q2

REPORT INFORMATION
  Report Type: Report from Study
  Country: US (occurrence: US)
  Receive Date: 20220401
  Receipt Date: 20220420
  Transmission Date: 20220721
  Serious: Yes (Death, Other)
  Sender: FDA-Public Use
  Company Number: US-GILEAD-2022-0575870

PATIENT
  Age: 60 Year
  Sex: Female

DRUGS (2)
  1. AMBRISENTAN [Suspect]
     Active Substance: AMBRISENTAN
     Indication: Pulmonary hypertension
     Dosage: 10 MG, QD
     Route: 065
     Dates: start: 20220210
  2. AMBRISENTAN [Suspect]
     Active Substance: AMBRISENTAN
     Indication: Takayasu^s arteritis

REACTIONS (1)
  - Pulmonary oedema [Fatal]

NARRATIVE: CASE EVENT DATE: 20220320
